FAERS Safety Report 16738529 (Version 1)
Quarter: 2019Q3

REPORT INFORMATION
  Report Type: Report from Study
  Country: AR (occurrence: AR)
  Receive Date: 20190826
  Receipt Date: 20190826
  Transmission Date: 20191005
  Serious: Yes (Other)
  Sender: FDA-Public Use
  Company Number: AR-BEH-2019105940

PATIENT

DRUGS (1)
  1. ALBUMIN HUMAN (GENERIC) [Suspect]
     Active Substance: ALBUMIN HUMAN
     Indication: PLASMAPHERESIS
     Route: 065

REACTIONS (2)
  - Coagulation factor XIII level decreased [Recovered/Resolved]
  - Haemorrhage [Unknown]
